FAERS Safety Report 8111738-7 (Version None)
Quarter: 2012Q1

REPORT INFORMATION
  Report Type: 
  Country: None (occurrence: None)
  Receive Date: 20120131
  Receipt Date: 20120120
  Transmission Date: 20120608
  Serious: Yes (Hospitalization, Other)
  Sender: FDA-Public Use
  Company Number: 2012P1003207

PATIENT
  Age: 60 Year
  Sex: Male

DRUGS (2)
  1. NALOXONE [Suspect]
     Indication: TOXICITY TO VARIOUS AGENTS
     Dosage: IV
     Route: 042
  2. METHADONE HCL [Suspect]
     Indication: DRUG WITHDRAWAL MAINTENANCE THERAPY
     Dosage: PO
     Route: 048

REACTIONS (14)
  - TOXICITY TO VARIOUS AGENTS [None]
  - ACCIDENTAL OVERDOSE [None]
  - DRUG WITHDRAWAL SYNDROME [None]
  - TACHYCARDIA [None]
  - CHEST PAIN [None]
  - EJECTION FRACTION DECREASED [None]
  - DYSPNOEA [None]
  - ELECTROCARDIOGRAM T WAVE INVERSION [None]
  - IATROGENIC INJURY [None]
  - LETHARGY [None]
  - HYPERTENSION [None]
  - ELECTROCARDIOGRAM ST SEGMENT ELEVATION [None]
  - STRESS CARDIOMYOPATHY [None]
  - AGITATION [None]
